FAERS Safety Report 12702945 (Version 1)
Quarter: 2016Q3

REPORT INFORMATION
  Report Type: Spontaneous
  Country: DE (occurrence: DE)
  Receive Date: 20160831
  Receipt Date: 20160831
  Transmission Date: 20161109
  Serious: Yes (Other)
  Sender: FDA-Public Use
  Company Number: PHHY2016DE117664

PATIENT
  Sex: Female

DRUGS (1)
  1. ZOMETA [Suspect]
     Active Substance: ZOLEDRONIC ACID
     Indication: PRODUCT USED FOR UNKNOWN INDICATION
     Dosage: UNK UNK, QMO
     Route: 065

REACTIONS (6)
  - Hypoaesthesia [Unknown]
  - Bone pain [Unknown]
  - Arrhythmia [Unknown]
  - Metastases to spine [Unknown]
  - Metastases to abdominal cavity [Unknown]
  - Asthenia [Unknown]
